FAERS Safety Report 8126291-1 (Version None)
Quarter: 2012Q1

REPORT INFORMATION
  Report Type: 
  Country: None (occurrence: None)
  Receive Date: 20120209
  Receipt Date: 20120128
  Transmission Date: 20120608
  Serious: Yes (Death, Hospitalization, Other)
  Sender: FDA-Public Use
  Company Number: CZ-ELI_LILLY_AND_COMPANY-CZ201201005430

PATIENT
  Sex: Male

DRUGS (8)
  1. MEDROL [Concomitant]
  2. VITAMIN D [Concomitant]
  3. METHOTREXATE [Concomitant]
  4. ENELBIN [Concomitant]
  5. CALCIUM [Concomitant]
  6. FUROSEMIDE [Concomitant]
  7. ANOPYRIN [Concomitant]
  8. FORTEO [Suspect]
     Indication: OSTEOPOROSIS
     Dosage: 20 UG, QD
     Route: 058
     Dates: start: 20111111, end: 20111117

REACTIONS (2)
  - DECREASED IMMUNE RESPONSIVENESS [None]
  - BRONCHOPNEUMONIA [None]
